FAERS Safety Report 21579948 (Version 1)
Quarter: 2022Q4

REPORT INFORMATION
  Report Type: Spontaneous
  Country: RO (occurrence: RO)
  Receive Date: 20221110
  Receipt Date: 20221110
  Transmission Date: 20230113
  Serious: Yes (Hospitalization, Other)
  Sender: FDA-Public Use
  Company Number: RO-009507513-2211ROU002395

PATIENT
  Age: 65 Year
  Sex: Male

DRUGS (2)
  1. KEYTRUDA [Suspect]
     Active Substance: PEMBROLIZUMAB
     Indication: Malignant melanoma stage IV
     Dosage: 200 MILLIGRAM, EVERY 21 DAYS
     Route: 042
     Dates: start: 20220906
  2. KEYTRUDA [Suspect]
     Active Substance: PEMBROLIZUMAB
     Dosage: 200 MILLIGRAM, Q3W
     Route: 042
     Dates: start: 20220927, end: 20220927

REACTIONS (2)
  - Eyelid ptosis [Recovering/Resolving]
  - Hepatic cytolysis [Recovering/Resolving]

NARRATIVE: CASE EVENT DATE: 20221010
